FAERS Safety Report 25997428 (Version 1)
Quarter: 2025Q4

REPORT INFORMATION
  Report Type: Report from Study
  Country: US (occurrence: US)
  Receive Date: 20251104
  Receipt Date: 20251104
  Transmission Date: 20260118
  Serious: Yes (Other)
  Sender: SERVIER
  Company Number: US-SERVIER-S25015928

PATIENT

DRUGS (1)
  1. VORASIDENIB [Suspect]
     Active Substance: VORASIDENIB
     Indication: Cholangiocarcinoma
     Dosage: 40 MG, QD
     Route: 048
     Dates: start: 20250306, end: 20251016

REACTIONS (5)
  - Immune-mediated hepatitis [Unknown]
  - Drug-induced liver injury [Unknown]
  - Aspartate aminotransferase increased [Unknown]
  - Alanine aminotransferase increased [Unknown]
  - Serum ferritin increased [Unknown]

NARRATIVE: CASE EVENT DATE: 20251001
